FAERS Safety Report 7563673-0 (Version None)
Quarter: 2011Q2

REPORT INFORMATION
  Report Type: 
  Country: None (occurrence: None)
  Receive Date: 20110621
  Receipt Date: 20110621
  Transmission Date: 20111010
  Serious: Yes (Other)
  Sender: FDA-Public Use
  Company Number: None

PATIENT
  Age: 63 Year
  Sex: Male
  Weight: 79.3795 kg

DRUGS (4)
  1. TESTOSTERONE [Suspect]
     Indication: BLOOD TESTOSTERONE DECREASED
     Dosage: TESTOSTERONE INJECTIONS 200 UN ONCE A MONTH SQ
     Route: 058
     Dates: start: 20090905, end: 20110401
  2. TESTOSTERONE [Suspect]
     Indication: BONE DENSITY DECREASED
     Dosage: TESTOSTERONE INJECTIONS 200 UN ONCE A MONTH SQ
     Route: 058
     Dates: start: 20090905, end: 20110401
  3. ANDRODERM [Suspect]
     Indication: BLOOD TESTOSTERONE DECREASED
     Dosage: TESTOSTERONE INJECTIONS 2.5MG ONCE A DAY TOP
     Route: 061
     Dates: start: 20110402, end: 20110505
  4. ANDRODERM [Suspect]
     Indication: BONE DENSITY DECREASED
     Dosage: TESTOSTERONE INJECTIONS 2.5MG ONCE A DAY TOP
     Route: 061
     Dates: start: 20110402, end: 20110505

REACTIONS (5)
  - APPLICATION SITE REACTION [None]
  - DRUG HYPERSENSITIVITY [None]
  - APPLICATION SITE ERYTHEMA [None]
  - ACNE [None]
  - BLEPHARITIS [None]
